FAERS Safety Report 10156749 (Version 1)
Quarter: 2014Q2

REPORT INFORMATION
  Report Type: Spontaneous
  Country: DE (occurrence: None)
  Receive Date: 20140505
  Receipt Date: 20140505
  Transmission Date: 20141212
  Serious: Yes (Congenital Anomaly, Other)
  Sender: FDA-Public Use
  Company Number: AUR-APL-2014-05176

PATIENT
  Age: 1 Day
  Sex: Male

DRUGS (2)
  1. SERTRALINE (SERTRALINE) [Suspect]
     Indication: DEPRESSION
     Route: 064
     Dates: start: 20121216, end: 20130919
  2. FOLSAURE (FOLIC ACID) [Concomitant]

REACTIONS (4)
  - Caesarean section [None]
  - Hypospadias [None]
  - Congenital anomaly [None]
  - Maternal drugs affecting foetus [None]
